FAERS Safety Report 6970081-X (Version None)
Quarter: 2010Q3

REPORT INFORMATION
  Report Type: 
  Country: None (occurrence: None)
  Receive Date: 20100903
  Receipt Date: 20100819
  Transmission Date: 20110219
  Serious: Yes (Hospitalization)
  Sender: FDA-Public Use
  Company Number: 1000015316

PATIENT
  Age: 77 Year
  Sex: Female
  Weight: 98 kg

DRUGS (3)
  1. MEMANTINE HCL [Suspect]
     Indication: DEMENTIA ALZHEIMER'S TYPE
     Dosage: 20 MG (20 MG, 1 IN 1 D) ORAL; 10 MG (10 MG, 1 IN 1 D) ORAL
     Route: 048
     Dates: start: 20100422, end: 20100610
  2. MEMANTINE HCL [Suspect]
     Indication: DEMENTIA ALZHEIMER'S TYPE
     Dosage: 20 MG (20 MG, 1 IN 1 D) ORAL; 10 MG (10 MG, 1 IN 1 D) ORAL
     Route: 048
     Dates: start: 20100611, end: 20100717
  3. RISPERIDON [Concomitant]

REACTIONS (5)
  - AGITATION [None]
  - DISORIENTATION [None]
  - GENERAL PHYSICAL HEALTH DETERIORATION [None]
  - GLYCOSYLATED HAEMOGLOBIN INCREASED [None]
  - MINI MENTAL STATUS EXAMINATION ABNORMAL [None]
